FAERS Safety Report 9539468 (Version 1)
Quarter: 2013Q3

REPORT INFORMATION
  Report Type: Spontaneous
  Country: IT (occurrence: None)
  Receive Date: 20130917
  Receipt Date: 20130917
  Transmission Date: 20140515
  Serious: Yes (Hospitalization)
  Sender: FDA-Public Use
  Company Number: FK201304176

PATIENT
  Age: 79 Year
  Sex: Male

DRUGS (2)
  1. INDOMETHACIN [Suspect]
     Indication: BACK PAIN
     Dosage: 100 MG, 1 IN 1 D, UNKNOWN
     Dates: start: 201005
  2. LISINOPRIL/HYDROCHLOROTHIAZIDE (PRINZIDE /00977901/) [Concomitant]

REACTIONS (1)
  - Portal vein thrombosis [None]
